FAERS Safety Report 8492930-9 (Version None)
Quarter: 2012Q3

REPORT INFORMATION
  Report Type: 
  Country: None (occurrence: None)
  Receive Date: 20120706
  Receipt Date: 20120628
  Transmission Date: 20120928
  Serious: Yes (Hospitalization)
  Sender: FDA-Public Use
  Company Number: US-GLAXOSMITHKLINE-A0982618A

PATIENT
  Age: 59 Year
  Sex: Female

DRUGS (1)
  1. FLOLAN [Suspect]
     Dosage: 122NGKM CONTINUOUS
     Route: 065
     Dates: start: 20020403

REACTIONS (3)
  - MUSCULAR WEAKNESS [None]
  - ASTHENIA [None]
  - FALL [None]
